FAERS Safety Report 6102849-6 (Version None)
Quarter: 2009Q1

REPORT INFORMATION
  Report Type: 
  Country: None (occurrence: None)
  Receive Date: 20090304
  Receipt Date: 20090220
  Transmission Date: 20090719
  Serious: Yes (Life-Threatening)
  Sender: FDA-Public Use
  Company Number: JP-GILEAD-2009-0020135

PATIENT
  Age: 43 Year
  Sex: Male

DRUGS (9)
  1. TRUVADA [Suspect]
     Indication: HIV INFECTION
     Route: 048
     Dates: start: 20080630, end: 20081208
  2. ISENTRESS [Concomitant]
     Indication: HIV INFECTION
     Route: 048
     Dates: start: 20081030, end: 20081208
  3. ISENTRESS [Concomitant]
     Route: 048
     Dates: start: 20080821, end: 20080929
  4. STOCRIN [Concomitant]
     Dates: start: 20080630, end: 20080821
  5. FUROSEMIDE [Concomitant]
     Dates: start: 20080827
  6. URSO 250 [Concomitant]
     Dates: start: 20080625, end: 20081208
  7. LIVACT [Concomitant]
     Dates: start: 20080625, end: 20081208
  8. NOVACT [Concomitant]
     Dates: start: 20080625, end: 20081208
  9. ALDACTONE [Concomitant]
     Dates: start: 20080827

REACTIONS (1)
  - JAUNDICE [None]
